FAERS Safety Report 8095837-4 (Version None)
Quarter: 2012Q1

REPORT INFORMATION
  Report Type: 
  Country: None (occurrence: None)
  Receive Date: 20120129
  Receipt Date: 20111209
  Transmission Date: 20120608
  Serious: No
  Sender: FDA-Public Use
  Company Number: US-ABBOTT-11P-163-0883332-00

PATIENT
  Sex: Female

DRUGS (6)
  1. MERCAPTOPURINE [Concomitant]
     Indication: CROHN'S DISEASE
     Dates: end: 20101001
  2. HUMIRA [Suspect]
     Dates: start: 20111001
  3. PREDNISONE TAB [Concomitant]
     Indication: CROHN'S DISEASE
     Route: 048
  4. LEVOTHYROXINE SODIUM [Concomitant]
     Indication: HYPOTHYROIDISM
  5. HUMIRA [Suspect]
     Indication: CROHN'S DISEASE
     Dates: start: 20100101, end: 20100101
  6. MERCAPTOPRINE [Concomitant]
     Indication: PRODUCT USED FOR UNKNOWN INDICATION

REACTIONS (6)
  - INJECTION SITE PAIN [None]
  - DRUG INEFFECTIVE [None]
  - CROHN'S DISEASE [None]
  - INJECTION SITE HAEMORRHAGE [None]
  - GESTATIONAL DIABETES [None]
  - POSTPARTUM DEPRESSION [None]
